FAERS Safety Report 14930896 (Version 1)
Quarter: 2018Q2

REPORT INFORMATION
  Report Type: Spontaneous
  Country: US (occurrence: US)
  Receive Date: 20180524
  Receipt Date: 20180524
  Transmission Date: 20180711
  Serious: No
  Sender: FDA-Public Use
  Company Number: US-BAUSCH-BL-2017-011094

PATIENT
  Age: 75 Year
  Sex: Male
  Weight: 99.88 kg

DRUGS (2)
  1. PRAVASTATIN. [Concomitant]
     Active Substance: PRAVASTATIN
     Indication: BLOOD CHOLESTEROL
  2. PROLENSA [Suspect]
     Active Substance: BROMFENAC SODIUM
     Indication: CATARACT OPERATION
     Dosage: RIGHT EYE
     Route: 047
     Dates: start: 20170424

REACTIONS (2)
  - Off label use [Unknown]
  - Drug prescribing error [Unknown]
